FAERS Safety Report 13544494 (Version 1)
Quarter: 2017Q2

REPORT INFORMATION
  Report Type: Spontaneous
  Country: US (occurrence: US)
  Receive Date: 20170512
  Receipt Date: 20170512
  Transmission Date: 20170830
  Serious: No
  Sender: FDA-Public Use
  Company Number: None

PATIENT
  Age: 53 Year
  Sex: Female

DRUGS (1)
  1. HUMIRA [Suspect]
     Active Substance: ADALIMUMAB
     Indication: IMMUNODEFICIENCY
     Route: 058
     Dates: start: 20161007, end: 20170425

REACTIONS (1)
  - Extradural abscess [None]

NARRATIVE: CASE EVENT DATE: 20170424
